FAERS Safety Report 5252723-2 (Version None)
Quarter: 2007Q1

REPORT INFORMATION
  Report Type: 
  Country: None (occurrence: None)
  Receive Date: 20070301
  Receipt Date: 20070108
  Transmission Date: 20070707
  Serious: Yes (Other)
  Sender: FDA-Public Use
  Company Number: US-GLAXOSMITHKLINE-A0627830A

PATIENT
  Age: 51 Year
  Sex: Female
  Weight: 73.6 kg

DRUGS (4)
  1. LAMICTAL [Suspect]
     Dosage: 150MG TWICE PER DAY
     Route: 048
     Dates: end: 20061115
  2. LEVOXYL [Concomitant]
     Indication: HYPOTHYROIDISM
     Dosage: 175MCG PER DAY
  3. NEXIUM [Concomitant]
     Dosage: 40MG PER DAY
  4. PREVACID [Concomitant]

REACTIONS (3)
  - ERYTHEMA [None]
  - RASH [None]
  - URTICARIA [None]
